FAERS Safety Report 4831530-6 (Version None)
Quarter: 2005Q4

REPORT INFORMATION
  Report Type: 
  Country: None (occurrence: None)
  Receive Date: 20051116
  Receipt Date: 20051101
  Transmission Date: 20060501
  Serious: Yes (Death)
  Sender: FDA-Public Use
  Company Number: 2341

PATIENT
  Sex: Male

DRUGS (2)
  1. DONNATAL [Suspect]
  2. ACETAMINOPHEN AND HYDROCODONE BITARTRATE [Suspect]

REACTIONS (2)
  - COMPLETED SUICIDE [None]
  - MULTIPLE DRUG OVERDOSE INTENTIONAL [None]
